FAERS Safety Report 4987244-5 (Version None)
Quarter: 2006Q2

REPORT INFORMATION
  Report Type: 
  Country: None (occurrence: None)
  Receive Date: 20060501
  Receipt Date: 20051219
  Transmission Date: 20061013
  Serious: Yes (Hospitalization, Disabling)
  Sender: FDA-Public Use
  Company Number: US-MERCK-0512USA02796

PATIENT
  Age: 53 Year
  Sex: Female
  Weight: 136 kg

DRUGS (9)
  1. VIOXX [Suspect]
     Indication: ARTHRITIS
     Route: 048
     Dates: start: 19980101, end: 20000901
  2. VIOXX [Suspect]
     Route: 048
     Dates: start: 20000301
  3. VIOXX [Suspect]
     Route: 048
     Dates: start: 20000501
  4. VIOXX [Suspect]
     Route: 048
     Dates: start: 20000801
  5. COZAAR [Concomitant]
     Route: 048
     Dates: start: 19970101
  6. LASIX [Concomitant]
     Route: 065
     Dates: start: 20000901
  7. ZOCOR [Concomitant]
     Indication: BLOOD CHOLESTEROL INCREASED
     Route: 048
     Dates: start: 19970201
  8. MICRONASE [Concomitant]
     Indication: DIABETES MELLITUS
     Route: 065
     Dates: start: 19920101
  9. ASPIRIN [Concomitant]
     Route: 065
     Dates: start: 20000901

REACTIONS (8)
  - ANAEMIA [None]
  - ANGINA UNSTABLE [None]
  - ARTERIAL THROMBOSIS [None]
  - CHOLELITHIASIS [None]
  - CORONARY ARTERY DISEASE [None]
  - HAEMORRHOIDS [None]
  - MYOCARDIAL INFARCTION [None]
  - NEURALGIA [None]
